FAERS Safety Report 5272768-6 (Version None)
Quarter: 2007Q1

REPORT INFORMATION
  Report Type: 
  Country: None (occurrence: None)
  Receive Date: 20070322
  Receipt Date: 20070316
  Transmission Date: 20070707
  Serious: Yes (Life-Threatening, Hospitalization)
  Sender: FDA-Public Use
  Company Number: JP-JPN-A200700942

PATIENT
  Age: 15 Year
  Sex: Female
  Weight: 60 kg

DRUGS (3)
  1. RELENZA [Suspect]
     Dosage: 10MG TWICE PER DAY
     Route: 055
     Dates: start: 20070302, end: 20070303
  2. HUSCODE [Concomitant]
     Dosage: 9.9ML PER DAY
     Route: 048
     Dates: start: 20070302
  3. MUCODYNE [Concomitant]
     Route: 048
     Dates: start: 20070302

REACTIONS (2)
  - CLONIC CONVULSION [None]
  - LOSS OF CONSCIOUSNESS [None]
